FAERS Safety Report 6731453-1 (Version None)
Quarter: 2010Q2

REPORT INFORMATION
  Report Type: 
  Country: None (occurrence: None)
  Receive Date: 20100519
  Receipt Date: 20100514
  Transmission Date: 20101027
  Serious: Yes (Death, Other)
  Sender: FDA-Public Use
  Company Number: PT-BRISTOL-MYERS SQUIBB COMPANY-15106842

PATIENT
  Age: 64 Year
  Sex: Male
  Weight: 56 kg

DRUGS (5)
  1. CISPLATIN [Suspect]
     Indication: NON-SMALL CELL LUNG CANCER
     Dosage: LAST DOSE ON 29APR2010
     Route: 042
     Dates: start: 20100318, end: 20100429
  2. ALIMTA [Suspect]
     Indication: NON-SMALL CELL LUNG CANCER
     Dosage: LAST DOSE ON 29-APR-2010
     Route: 042
     Dates: start: 20100318, end: 20100429
  3. FOLIC ACID [Concomitant]
     Indication: PROPHYLAXIS
     Dates: start: 20100310, end: 20100507
  4. VITAMIN B-12 [Concomitant]
     Indication: PROPHYLAXIS
     Dates: start: 20100310, end: 20100507
  5. DEXAMETHASONE [Concomitant]
     Indication: PROPHYLAXIS
     Dates: start: 20100317, end: 20100430

REACTIONS (4)
  - DEHYDRATION [None]
  - FEBRILE NEUTROPENIA [None]
  - PNEUMONIA [None]
  - RENAL FAILURE ACUTE [None]
